FAERS Safety Report 8464199 (Version 2)
Quarter: 2013Q3

REPORT INFORMATION
  Report Type: Report from Study
  Country: GB (occurrence: GB)
  Receive Date: 20120316
  Receipt Date: 20130805
  Transmission Date: 20140515
  Serious: Yes (Hospitalization)
  Sender: FDA-Public Use
  Company Number: GB-ROCHE-1046435

PATIENT
  Sex: Female
  Weight: 85 kg

DRUGS (4)
  1. RITUXIMAB [Suspect]
     Indication: PRODUCT USED FOR UNKNOWN INDICATION
     Route: 065
     Dates: start: 20100929
  2. TOCILIZUMAB [Suspect]
     Indication: PRODUCT USED FOR UNKNOWN INDICATION
     Dosage: DATE OF LAST DOSE PRIOR TO SAE: 26/FEB/2013
     Route: 065
     Dates: start: 20111212
  3. METHOTREXATE [Concomitant]
     Route: 065
     Dates: start: 201009
  4. HYDROXYCHLOROQUINE [Concomitant]
     Route: 065
     Dates: start: 20110527

REACTIONS (3)
  - Femoral artery occlusion [Recovered/Resolved]
  - Localised infection [Recovered/Resolved]
  - Abscess limb [Unknown]
